FAERS Safety Report 4668634-7 (Version None)
Quarter: 2005Q2

REPORT INFORMATION
  Report Type: 
  Country: None (occurrence: None)
  Receive Date: 20050523
  Receipt Date: 20050511
  Transmission Date: 20051028
  Serious: Yes (Other)
  Sender: FDA-Public Use
  Company Number: US-KINGPHARMUSA00001-K200500646

PATIENT
  Sex: Male

DRUGS (1)
  1. SONATA [Suspect]
     Indication: INSOMNIA
     Dosage: UNK, QHS
     Route: 048
     Dates: start: 20050401, end: 20050401

REACTIONS (6)
  - AGGRESSION [None]
  - AMNESIA [None]
  - CONFUSIONAL STATE [None]
  - DISORIENTATION [None]
  - HALLUCINATION [None]
  - SWOLLEN TONGUE [None]
